FAERS Safety Report 7311101-2 (Version None)
Quarter: 2011Q1

REPORT INFORMATION
  Report Type: 
  Country: None (occurrence: None)
  Receive Date: 20110224
  Receipt Date: 20110217
  Transmission Date: 20110831
  Serious: Yes (Death, Hospitalization)
  Sender: FDA-Public Use
  Company Number: CN-ROCHE-752299

PATIENT
  Sex: Male
  Weight: 65 kg

DRUGS (3)
  1. PEGINTERFERON ALFA-2A [Suspect]
     Dosage: DATE OF LAST DOSE PRIOR TO SAE : 17 DECEMBER 2010, PERMANENTLY DISCONTNUED.
     Route: 058
     Dates: start: 20100212, end: 20101220
  2. RIBAVIRIN [Suspect]
     Dosage: DATE OF LAST DOSE PRIOR TO SAE : 20 DECEMBER 2010, PERMANENTLY DISCONTNUED.
     Route: 048
     Dates: start: 20100212, end: 20101220
  3. METHADONE [Concomitant]
     Dates: start: 20080101, end: 20110122

REACTIONS (2)
  - HEPATORENAL SYNDROME [None]
  - TUBERCULOSIS GASTROINTESTINAL [None]
